FAERS Safety Report 22538439 (Version 1)
Quarter: 2023Q2

REPORT INFORMATION
  Report Type: Spontaneous
  Country: FR (occurrence: FR)
  Receive Date: 20230609
  Receipt Date: 20230609
  Transmission Date: 20230722
  Serious: Yes (Hospitalization, Other)
  Sender: FDA-Public Use
  Company Number: FR-AFSSAPS-NC2023000610

PATIENT
  Age: 72 Year
  Sex: Female
  Weight: 60 kg

DRUGS (5)
  1. BROMAZEPAM [Suspect]
     Active Substance: BROMAZEPAM
     Indication: Poisoning deliberate
     Dosage: 180 MILLIGRAM
     Route: 048
     Dates: start: 20230504, end: 20230504
  2. FLUOXETINE [Suspect]
     Active Substance: FLUOXETINE HYDROCHLORIDE
     Indication: Poisoning deliberate
     Dosage: 1120 MILLIGRAM, 1 TOTAL
     Route: 048
     Dates: start: 20230504, end: 20230504
  3. DOLIPRANE [Suspect]
     Active Substance: ACETAMINOPHEN
     Indication: Poisoning deliberate
     Dosage: 56 GRAM
     Route: 048
     Dates: start: 20230504, end: 20230504
  4. LOPRAZOLAM [Suspect]
     Active Substance: LOPRAZOLAM
     Indication: Poisoning deliberate
     Dosage: 20 MILLIGRAM
     Route: 048
     Dates: start: 20230504, end: 20230504
  5. ASPIRIN [Suspect]
     Active Substance: ASPIRIN
     Indication: Poisoning deliberate
     Dosage: UNK UNK, ONCE A DAY(SEE COMMENT)(
     Route: 048
     Dates: start: 20230504, end: 20230504

REACTIONS (1)
  - Coma [Recovered/Resolved]

NARRATIVE: CASE EVENT DATE: 20230504
